FAERS Safety Report 4367341-8 (Version None)
Quarter: 2004Q2

REPORT INFORMATION
  Report Type: 
  Country: None (occurrence: None)
  Receive Date: 20040527
  Receipt Date: 20040513
  Transmission Date: 20050107
  Serious: Yes (Life-Threatening, Hospitalization, Disabling, Other)
  Sender: FDA-Public Use
  Company Number: A-CH2004-06208

PATIENT
  Age: 56 Year
  Sex: Female
  Weight: 79 kg

DRUGS (9)
  1. TRACLEER [Suspect]
     Indication: RAYNAUD'S PHENOMENON
     Dosage: 62.5 + 125 MG, BID, ORAL
     Route: 048
     Dates: start: 20020720, end: 20020801
  2. TRACLEER [Suspect]
     Indication: RAYNAUD'S PHENOMENON
     Dosage: 62.5 + 125 MG, BID, ORAL
     Route: 048
     Dates: start: 20020801, end: 20021128
  3. MARCUMAR [Suspect]
     Indication: NECROSIS
     Dates: start: 20011201
  4. METHOTREXATE [Concomitant]
  5. PREDNISOLONE [Concomitant]
  6. AMLODIPINE [Concomitant]
  7. CARBAMAZEPINE [Concomitant]
  8. MORPHINE [Concomitant]
  9. PANTOPRAZOLE(PANTOPRAZOLE) [Concomitant]

REACTIONS (4)
  - BRAIN STEM ISCHAEMIA [None]
  - CEREBRAL ISCHAEMIA [None]
  - DRUG INTERACTION [None]
  - PROTHROMBIN TIME SHORTENED [None]
